FAERS Safety Report 7017134-8 (Version None)
Quarter: 2010Q3

REPORT INFORMATION
  Report Type: 
  Country: None (occurrence: None)
  Receive Date: 20100928
  Receipt Date: 20100915
  Transmission Date: 20110219
  Serious: No
  Sender: FDA-Public Use
  Company Number: US-BIOGENIDEC-2010BI020982

PATIENT
  Sex: Female

DRUGS (5)
  1. TYSABRI [Suspect]
     Indication: MULTIPLE SCLEROSIS
     Route: 042
     Dates: start: 20090611
  2. AVONEX [Concomitant]
     Indication: MULTIPLE SCLEROSIS
     Route: 030
  3. AMPYRA [Concomitant]
     Indication: GAIT DISTURBANCE
     Dates: start: 20100601, end: 20100801
  4. VITAMIN B6 [Concomitant]
     Indication: SUPPLEMENTATION THERAPY
     Dates: start: 20100701
  5. VITAMIN B-12 [Concomitant]
     Dates: start: 20100701

REACTIONS (12)
  - ASTHMA [None]
  - CHEST DISCOMFORT [None]
  - CHEST PAIN [None]
  - DIZZINESS [None]
  - DYSPNOEA [None]
  - HEART RATE IRREGULAR [None]
  - HYPERTENSION [None]
  - LYMPHADENOPATHY [None]
  - MUSCLE SPASMS [None]
  - RESPIRATORY TRACT CONGESTION [None]
  - VISUAL IMPAIRMENT [None]
  - WHEEZING [None]
